FAERS Safety Report 10071732 (Version 2)
Quarter: 2014Q2

REPORT INFORMATION
  Report Type: Spontaneous
  Country: US (occurrence: US)
  Receive Date: 20140411
  Receipt Date: 20140411
  Transmission Date: 20141212
  Serious: Yes (Hospitalization, Disabling)
  Sender: FDA-Public Use
  Company Number: US-BEH-2012034295

PATIENT
  Age: 58 Year
  Sex: Female
  Weight: 93 kg

DRUGS (24)
  1. PRIVIGEN [Suspect]
     Indication: HYPOGAMMAGLOBULINAEMIA
     Dosage: DIVIDED OVER 2 DAYS
     Route: 042
  2. PRIVIGEN [Suspect]
     Dosage: 5 GM VIAL;10% CONCEMTRATION DIVIDED OVER 2 DAYS
     Route: 042
     Dates: start: 20130115, end: 20130115
  3. PRIVIGEN [Suspect]
     Route: 042
  4. PRIVIGEN [Suspect]
     Dosage: 5 GM VIAL;DIVIDE OVER 2 DAYS
     Route: 042
  5. PRIVIGEN [Suspect]
     Route: 042
  6. PRIVIGEN [Suspect]
     Route: 042
  7. VERAPAMIL [Concomitant]
  8. VERAPAMIL [Concomitant]
  9. XOPENEX [Concomitant]
  10. SINGULAIR [Concomitant]
  11. ADVAIR [Concomitant]
  12. MUCINEX [Concomitant]
  13. ACETAMINOPHEN [Concomitant]
  14. DIPHENHYDRAMINE [Concomitant]
     Indication: PREMEDICATION
     Dosage: PRE-MEDICATION
     Route: 040
     Dates: start: 20130115, end: 20130115
  15. DIPHENHYDRAMINE [Concomitant]
     Dosage: REPEAT X1
     Route: 040
     Dates: start: 20130115, end: 20130115
  16. SODIUM CHLORIDE [Concomitant]
     Indication: PREMEDICATION
  17. EPI-PEN [Concomitant]
  18. HEPARIN [Concomitant]
  19. AUGMENTIN [Concomitant]
  20. POTASSIUM CL ER [Concomitant]
  21. PREDNISONE [Concomitant]
  22. METFORMIN [Concomitant]
  23. DELTA D3 [Concomitant]
  24. ACYCLOVIR [Concomitant]

REACTIONS (13)
  - Herpes zoster [Recovered/Resolved]
  - Muscular weakness [Recovered/Resolved]
  - Fatigue [Recovered/Resolved]
  - Dysstasia [Unknown]
  - Chills [Recovered/Resolved]
  - Chills [Unknown]
  - Hospitalisation [Recovered/Resolved]
  - Asthma [Recovered/Resolved]
  - Blood pressure increased [Recovered/Resolved]
  - Tachycardia [Recovered/Resolved]
  - Stress [Recovered/Resolved]
  - Bronchitis [Unknown]
  - Upper respiratory tract infection [Unknown]
